FAERS Safety Report 18424880 (Version 1)
Quarter: 2020Q4

REPORT INFORMATION
  Report Type: Spontaneous
  Country: SE (occurrence: SE)
  Receive Date: 20201026
  Receipt Date: 20201026
  Transmission Date: 20210114
  Serious: Yes (Other)
  Sender: FDA-Public Use
  Company Number: SE-SHIRE-SE202034308

PATIENT

DRUGS (5)
  1. HUMAN ALBUMIN [Suspect]
     Active Substance: ALBUMIN HUMAN
     Indication: PRODUCT USED FOR UNKNOWN INDICATION
     Dosage: 250 MILLILITER, OTHER (ONE DOSE)
     Route: 065
  2. NORADRENALINE [NOREPINEPHRINE] [Suspect]
     Active Substance: NOREPINEPHRINE
     Dosage: 0.1 MICROGRAM/KILOGRAM/ MINUTE
     Route: 065
  3. METHYLENE BLUE. [Suspect]
     Active Substance: METHYLENE BLUE
     Indication: VASODILATATION
     Dosage: 1 MILLIGRAM/KILOGRAM
     Route: 065
  4. NORADRENALINE [NOREPINEPHRINE] [Suspect]
     Active Substance: NOREPINEPHRINE
     Indication: VASODILATATION
     Dosage: 0.5 MICROGRAM/KILOGRAM/ MINUTE
     Route: 065
  5. VASOPRESSIN. [Suspect]
     Active Substance: VASOPRESSIN
     Indication: VASODILATATION
     Dosage: 0.03 INTERNATIONAL UNIT PER MINUTE
     Route: 065

REACTIONS (1)
  - Drug ineffective [Unknown]
